FAERS Safety Report 5092919-6 (Version None)
Quarter: 2006Q3

REPORT INFORMATION
  Report Type: 
  Country: None (occurrence: None)
  Receive Date: 20060830
  Receipt Date: 20060501
  Transmission Date: 20061208
  Serious: No
  Sender: FDA-Public Use
  Company Number: US-BRISTOL-MYERS SQUIBB COMPANY-13361324

PATIENT
  Age: 91 Year
  Sex: Male
  Weight: 75 kg

DRUGS (2)
  1. LAC-HYDRIN [Suspect]
     Indication: ONYCHOMYCOSIS
     Dates: start: 20040501, end: 20050501
  2. CARDIZEM [Concomitant]

REACTIONS (2)
  - DRUG INEFFECTIVE [None]
  - SKIN DISCOLOURATION [None]
